FAERS Safety Report 10048547 (Version 1)
Quarter: 2014Q1

REPORT INFORMATION
  Report Type: Spontaneous
  Country: US (occurrence: US)
  Receive Date: 20140331
  Receipt Date: 20140331
  Transmission Date: 20141002
  Serious: No
  Sender: FDA-Public Use
  Company Number: US-TEVA-471988USA

PATIENT
  Age: 56 Year
  Sex: Male
  Weight: 74.91 kg

DRUGS (1)
  1. PROAIR HFA [Suspect]
     Indication: INFLUENZA
     Dates: start: 20140129, end: 20140201

REACTIONS (1)
  - Product taste abnormal [Unknown]
